FAERS Safety Report 10618694 (Version 2)
Quarter: 2014Q4

REPORT INFORMATION
  Report Type: Report from Study
  Country: JP (occurrence: JP)
  Receive Date: 20141202
  Receipt Date: 20141202
  Transmission Date: 20150529
  Serious: Yes (Hospitalization, Other)
  Sender: FDA-Public Use
  Company Number: PHHY2009JP32799

PATIENT
  Age: 69 Year
  Sex: Female

DRUGS (6)
  1. GLIVEC [Suspect]
     Active Substance: IMATINIB MESYLATE
     Dosage: 200 MG, QD
     Route: 048
     Dates: start: 20071023, end: 20090501
  2. NO TREATMENT RECEIVED [Suspect]
     Active Substance: UNSPECIFIED INGREDIENT
     Indication: PRODUCT USED FOR UNKNOWN INDICATION
     Route: 065
  3. GLIVEC [Suspect]
     Active Substance: IMATINIB MESYLATE
     Dosage: 300 MG, QD
     Dates: start: 20080122
  4. GLIVEC [Suspect]
     Active Substance: IMATINIB MESYLATE
     Indication: CHRONIC MYELOID LEUKAEMIA
     Dosage: 400 MG, QD
     Route: 048
     Dates: start: 20070914
  5. GLIVEC [Suspect]
     Active Substance: IMATINIB MESYLATE
     Dosage: 200 MG, QD
     Route: 048
     Dates: start: 20071005
  6. GLIVEC [Suspect]
     Active Substance: IMATINIB MESYLATE
     Dosage: 200 MG, QD
     Route: 048
     Dates: start: 20090626

REACTIONS (13)
  - Cardiac failure [Unknown]
  - Face oedema [Recovering/Resolving]
  - Gastric ulcer [Recovered/Resolved]
  - Asthma [Recovered/Resolved]
  - Decreased appetite [Recovering/Resolving]
  - Interstitial lung disease [Unknown]
  - Nausea [Recovering/Resolving]
  - Haematemesis [Recovered/Resolved]
  - Melaena [Recovered/Resolved]
  - Dysgeusia [Not Recovered/Not Resolved]
  - Rash generalised [Not Recovered/Not Resolved]
  - Oedema [Recovering/Resolving]
  - Rash [Recovering/Resolving]

NARRATIVE: CASE EVENT DATE: 200709
